FAERS Safety Report 8836096 (Version 1)
Quarter: 2012Q4

REPORT INFORMATION
  Report Type: Report from Study
  Country: US (occurrence: US)
  Receive Date: 20121011
  Receipt Date: 20121011
  Transmission Date: 20130627
  Serious: Yes (Hospitalization)
  Sender: FDA-Public Use
  Company Number: US-JNJFOC-20121005207

PATIENT
  Age: 68 None
  Sex: Male
  Weight: 93.9 kg

DRUGS (3)
  1. XARELTO [Suspect]
     Indication: PULMONARY EMBOLISM
     Route: 048
     Dates: start: 201209, end: 20120928
  2. PREDNISONE [Concomitant]
     Indication: MYASTHENIA GRAVIS
     Route: 048
     Dates: start: 2011
  3. MESTINON [Concomitant]
     Indication: MYASTHENIA GRAVIS

REACTIONS (3)
  - Myasthenia gravis crisis [Not Recovered/Not Resolved]
  - Prothrombin time prolonged [Unknown]
  - International normalised ratio normal [Unknown]
